FAERS Safety Report 19909709 (Version 1)
Quarter: 2021Q4

REPORT INFORMATION
  Report Type: Report from Study
  Country: FR (occurrence: FR)
  Receive Date: 20211002
  Receipt Date: 20211002
  Transmission Date: 20220303
  Serious: Yes (Hospitalization)
  Sender: FDA-Public Use
  Company Number: FR-SERVIER-S21010920

PATIENT

DRUGS (9)
  1. PEGASPARGASE [Suspect]
     Active Substance: PEGASPARGASE
     Indication: Acute lymphocytic leukaemia
     Dosage: 4125 IU, QD, ON D4 AND D43
     Route: 042
     Dates: start: 20200928
  2. TN UNSPECIFIED [Concomitant]
     Indication: Acute lymphocytic leukaemia
     Dosage: 1 MG ON D1, D8, D15
     Route: 042
     Dates: start: 20200925
  3. ADRIAMYCIN [Concomitant]
     Active Substance: DOXORUBICIN HYDROCHLORIDE
     Indication: Acute lymphocytic leukaemia
     Dosage: 25 IU, ON D1,D8,D15
     Route: 042
     Dates: start: 20200925, end: 20201009
  4. TN UNSPECIFIED [Concomitant]
     Indication: Acute lymphocytic leukaemia
     Dosage: 15 MG, D4, D29
     Route: 037
     Dates: start: 20200928, end: 20201030
  5. TN UNSPECIFIED [Concomitant]
     Indication: Acute lymphocytic leukaemia
     Dosage: 30 MG
     Route: 037
     Dates: start: 20200928, end: 20201030
  6. TN UNSPECIFIED [Concomitant]
     Dosage: 120 MG, D31 TO D34, D38 TO D41
     Route: 042
     Dates: start: 20201102, end: 20201112
  7. TN UNSPECIFIED [Concomitant]
     Indication: Acute lymphocytic leukaemia
     Dosage: 15 MG, D4, D29
     Route: 037
     Dates: start: 20200928, end: 20201030
  8. TN UNSPECIFIED [Concomitant]
     Indication: Acute lymphocytic leukaemia
     Dosage: 0.5 MG, ON DAYS D1 TO D8, D15 TO D22
     Route: 048
     Dates: start: 20200926, end: 20201016
  9. TN UNSPECIFIED [Concomitant]
     Indication: Acute lymphocytic leukaemia
     Dosage: 1670 MG, ON D29
     Route: 042
     Dates: start: 20201030

REACTIONS (1)
  - Bronchopulmonary aspergillosis [Not Recovered/Not Resolved]

NARRATIVE: CASE EVENT DATE: 20201130
